FAERS Safety Report 6106698-4 (Version None)
Quarter: 2009Q1

REPORT INFORMATION
  Report Type: 
  Country: None (occurrence: None)
  Receive Date: 20090305
  Receipt Date: 20081204
  Transmission Date: 20090719
  Serious: No
  Sender: FDA-Public Use
  Company Number: ADE# 08-203

PATIENT
  Age: 69 Year
  Sex: Female
  Weight: 63.5036 kg

DRUGS (1)
  1. METFORMIN HYDROCHLORIDE ER               TABLETS, 500MG SUN/SUN [Suspect]
     Indication: DIABETES MELLITUS
     Dosage: 2/AM AND 1/EVENING
     Dates: start: 20081114

REACTIONS (4)
  - DEPRESSION [None]
  - DIABETES MELLITUS INADEQUATE CONTROL [None]
  - MALAISE [None]
  - PRODUCT QUALITY ISSUE [None]
